FAERS Safety Report 11224938 (Version 1)
Quarter: 2015Q2

REPORT INFORMATION
  Report Type: Spontaneous
  Country: FR (occurrence: FR)
  Receive Date: 20150629
  Receipt Date: 20150629
  Transmission Date: 20150821
  Serious: Yes (Life-Threatening, Hospitalization)
  Sender: FDA-Public Use
  Company Number: FR-PFIZER INC-2015210562

PATIENT
  Age: 56 Year
  Sex: Male

DRUGS (1)
  1. RHINADVIL [Suspect]
     Active Substance: IBUPROFEN\PSEUDOEPHEDRINE HYDROCHLORIDE
     Dosage: UNK
     Route: 048
     Dates: end: 20150130

REACTIONS (3)
  - Haemorrhagic stroke [Recovering/Resolving]
  - Cerebral haemorrhage [Recovering/Resolving]
  - IIIrd nerve paralysis [Recovering/Resolving]

NARRATIVE: CASE EVENT DATE: 20150209
